FAERS Safety Report 4500499-6 (Version None)
Quarter: 2004Q3

REPORT INFORMATION
  Report Type: 
  Country: None (occurrence: None)
  Receive Date: 20040928
  Receipt Date: 20040603
  Transmission Date: 20050211
  Serious: No
  Sender: FDA-Public Use
  Company Number: 03P-163-0227541-00

PATIENT
  Age: 48 Year
  Sex: Female
  Weight: 136.0791 kg

DRUGS (11)
  1. HUMIRA [Suspect]
     Indication: RHEUMATOID ARTHRITIS
     Dosage: 40 MG, 1 IN 2 WK, SUBCUTANEOUS
     Route: 058
     Dates: start: 20030701
  2. HYDROXYCHLOROQUINE PHOSPHATE [Concomitant]
  3. BUCINDOLOL HYDROCHLORIDE [Concomitant]
  4. AZATHIOPRINE [Concomitant]
  5. PREDNISONE [Concomitant]
  6. LEVOTHYROXINE SODIUM [Concomitant]
  7. DIPHENHYDRAMINE HYDROCHLORIDE [Concomitant]
  8. VOLTAREN [Concomitant]
  9. CALCIUM WITH VITAMIN D [Concomitant]
  10. MULTI-VITAMINS [Concomitant]
  11. ASCORBIC ACID [Concomitant]

REACTIONS (6)
  - ALOPECIA [None]
  - GENITAL PRURITUS FEMALE [None]
  - INJECTION SITE BURNING [None]
  - INJECTION SITE SWELLING [None]
  - PRURITUS [None]
  - RASH ERYTHEMATOUS [None]
